FAERS Safety Report 25220892 (Version 1)
Quarter: 2025Q2

REPORT INFORMATION
  Report Type: Report from Study
  Country: CA (occurrence: CA)
  Receive Date: 20250421
  Receipt Date: 20250421
  Transmission Date: 20250717
  Serious: Yes (Other)
  Sender: ABBVIE
  Company Number: CA-ABBVIE-6233833

PATIENT
  Age: 47 Year
  Sex: Male

DRUGS (1)
  1. SKYRIZI [Suspect]
     Active Substance: RISANKIZUMAB-RZAA
     Indication: Crohn^s disease
     Route: 042
     Dates: start: 20250314, end: 20250314

REACTIONS (3)
  - Stoma creation [Unknown]
  - Diarrhoea [Unknown]
  - Harvey-Bradshaw index abnormal [Unknown]

NARRATIVE: CASE EVENT DATE: 20250101
